FAERS Safety Report 22300026 (Version 2)
Quarter: 2023Q2

REPORT INFORMATION
  Report Type: Spontaneous
  Country: US (occurrence: US)
  Receive Date: 20230509
  Receipt Date: 20230523
  Transmission Date: 20230722
  Serious: Yes (Hospitalization, Other)
  Sender: FDA-Public Use
  Company Number: US-PFIZER INC-202300178978

PATIENT
  Age: 21 Year
  Sex: Male

DRUGS (1)
  1. FENTANYL CITRATE [Suspect]
     Active Substance: FENTANYL CITRATE
     Dosage: UNK, DAILY
     Route: 045

REACTIONS (3)
  - Drug abuse [Unknown]
  - Drug withdrawal syndrome [Unknown]
  - Off label use [Unknown]
